FAERS Safety Report 5274169-3 (Version None)
Quarter: 2007Q1

REPORT INFORMATION
  Report Type: 
  Country: None (occurrence: None)
  Receive Date: 20070323
  Receipt Date: 20070312
  Transmission Date: 20070707
  Serious: Yes (Hospitalization)
  Sender: FDA-Public Use
  Company Number: PHBS2007JP02520

PATIENT
  Age: 87 Year
  Sex: Male

DRUGS (7)
  1. GLEEVEC [Suspect]
     Indication: CHRONIC MYELOID LEUKAEMIA
     Dosage: 200 MG/D
     Route: 048
     Dates: start: 20050627
  2. FAMOTIDINE [Concomitant]
     Route: 065
     Dates: start: 20060710
  3. MUCOSTA [Concomitant]
     Route: 065
  4. ASPIRIN [Concomitant]
     Route: 065
  5. LASIX [Concomitant]
     Route: 065
     Dates: start: 20050525
  6. CLEANAL [Concomitant]
     Route: 065
     Dates: start: 20050808
  7. URALYT [Concomitant]
     Route: 065
     Dates: start: 20060206

REACTIONS (4)
  - BRONCHIOLITIS [None]
  - DRUG ERUPTION [None]
  - DYSPNOEA [None]
  - PYREXIA [None]
